FAERS Safety Report 24594078 (Version 1)
Quarter: 2024Q4

REPORT INFORMATION
  Report Type: Spontaneous
  Country: BG (occurrence: BG)
  Receive Date: 20241108
  Receipt Date: 20241108
  Transmission Date: 20250115
  Serious: Yes (Other)
  Sender: RANBAXY
  Company Number: BG-SUN PHARMACEUTICAL INDUSTRIES LTD-2024R1-477786

PATIENT
  Age: 87 Year
  Sex: Female

DRUGS (3)
  1. BISOPROLOL [Suspect]
     Active Substance: BISOPROLOL\BISOPROLOL FUMARATE
     Indication: Hypertension
     Dosage: 5 MILLIGRAM, QD
     Route: 065
  2. PROPAFENONE [Suspect]
     Active Substance: PROPAFENONE
     Indication: Hypertension
     Dosage: 150 MILLIGRAM, QD
     Route: 065
  3. HYDROCHLOROTHIAZIDE\LISINOPRIL [Suspect]
     Active Substance: HYDROCHLOROTHIAZIDE\LISINOPRIL
     Indication: Hypertension
     Dosage: 20 MG/12.5MG, QD
     Route: 065

REACTIONS (1)
  - Squamous cell carcinoma of skin [Unknown]
